FAERS Safety Report 15256193 (Version 1)
Quarter: 2018Q3

REPORT INFORMATION
  Report Type: Spontaneous
  Country: US (occurrence: US)
  Receive Date: 20180808
  Receipt Date: 20180808
  Transmission Date: 20181010
  Serious: No
  Sender: FDA-Public Use
  Company Number: US-GLAXOSMITHKLINE-US2018139911

PATIENT
  Age: 85 Year
  Sex: Female

DRUGS (1)
  1. FLONASE SENSIMIST ALLERGY RELIEF [Suspect]
     Active Substance: FLUTICASONE FUROATE
     Indication: HYPERSENSITIVITY
     Dosage: UNK
     Dates: start: 20180729

REACTIONS (8)
  - Inappropriate schedule of drug administration [Unknown]
  - Ear pain [Unknown]
  - Drug ineffective [Unknown]
  - Wrong technique in product usage process [Unknown]
  - Pain in extremity [Unknown]
  - Contraindicated product administered [Unknown]
  - Ocular discomfort [Unknown]
  - Headache [Unknown]

NARRATIVE: CASE EVENT DATE: 20180802
